FAERS Safety Report 16868373 (Version 1)
Quarter: 2019Q3

REPORT INFORMATION
  Report Type: Spontaneous
  Country: US (occurrence: US)
  Receive Date: 20190930
  Receipt Date: 20190930
  Transmission Date: 20191005
  Serious: No
  Sender: FDA-Public Use
  Company Number: US-PFIZER INC-2019417575

PATIENT
  Age: 85 Year
  Sex: Male

DRUGS (1)
  1. VYNDAQEL [Suspect]
     Active Substance: TAFAMIDIS MEGLUMINE
     Dosage: 60 MG, DAILY
     Dates: start: 20190924

REACTIONS (4)
  - Intentional product use issue [Unknown]
  - Product use complaint [Unknown]
  - Dysphagia [Unknown]
  - Skin discolouration [Unknown]
